FAERS Safety Report 23033383 (Version 2)
Quarter: 2023Q4

REPORT INFORMATION
  Report Type: Report from Study
  Country: JP (occurrence: JP)
  Receive Date: 20231005
  Receipt Date: 20231017
  Transmission Date: 20240110
  Serious: Yes (Hospitalization)
  Sender: FDA-Public Use
  Company Number: JP-PFIZER INC-PV202300158094

PATIENT
  Age: 21 Year
  Sex: Female
  Weight: 78.1 kg

DRUGS (13)
  1. SOMATROPIN [Suspect]
     Active Substance: SOMATROPIN
     Indication: Prader-Willi syndrome
     Dosage: 0.45 MG, 6 TIMES A WEEK
     Route: 058
     Dates: start: 20210511, end: 20210610
  2. SOMATROPIN [Suspect]
     Active Substance: SOMATROPIN
     Dosage: 1.05 MG, 6 TIMES IN A WEEK
     Route: 058
     Dates: start: 20210611, end: 20211101
  3. SOMATROPIN [Suspect]
     Active Substance: SOMATROPIN
     Dosage: 1.2 MG, 6 TIMES IN A WEEK
     Route: 058
     Dates: start: 20211102, end: 20211123
  4. SOMATROPIN [Suspect]
     Active Substance: SOMATROPIN
     Dosage: 1.05 MG, 6 TIMES IN A WEEK
     Route: 058
     Dates: start: 20211129, end: 20211214
  5. SOMATROPIN [Suspect]
     Active Substance: SOMATROPIN
     Dosage: 1.2 MG, 6 TIMES IN A WEEK
     Route: 058
     Dates: start: 20211215, end: 20230914
  6. RINDERON VG [Concomitant]
     Active Substance: BETAMETHASONE VALERATE\GENTAMICIN SULFATE
     Indication: Skin abrasion
     Dosage: UNK
     Dates: start: 20120512
  7. GENTAMICIN SULFATE [Concomitant]
     Active Substance: GENTAMICIN SULFATE
     Indication: Skin abrasion
     Dosage: UNK
     Dates: start: 20210817
  8. ZINC OXIDE [Concomitant]
     Active Substance: ZINC OXIDE
     Indication: Skin abrasion
     Dosage: UNK
     Dates: start: 20210817
  9. AMLODIPINE BESYLATE [Concomitant]
     Active Substance: AMLODIPINE BESYLATE
     Indication: Hypertension
     Dosage: 5 MG, TWICE A DAY
     Route: 048
     Dates: start: 20211124
  10. BETAMETHASONE BUTYRATE PROPIONATE [Concomitant]
     Active Substance: BETAMETHASONE BUTYRATE PROPIONATE
     Indication: Skin abrasion
     Dosage: UNK
     Dates: start: 20220802
  11. LEVOCETIRIZINE HYDROCHLORIDE [Concomitant]
     Active Substance: LEVOCETIRIZINE HYDROCHLORIDE
     Indication: Rhinitis
     Dosage: 5 MG, ONCE A DAY
     Route: 048
     Dates: start: 20220802
  12. NADIFLOXACIN [Concomitant]
     Active Substance: NADIFLOXACIN
     Indication: Tinea pedis
     Dosage: UNK
     Dates: start: 20221007
  13. TERBINAFINE HYDROCHLORIDE [Concomitant]
     Active Substance: TERBINAFINE HYDROCHLORIDE
     Indication: Tinea pedis
     Dosage: UNK
     Dates: start: 20221007

REACTIONS (1)
  - Seizure [Recovered/Resolved]

NARRATIVE: CASE EVENT DATE: 20230919
